FAERS Safety Report 5676293-X (Version None)
Quarter: 2008Q1

REPORT INFORMATION
  Report Type: 
  Country: None (occurrence: None)
  Receive Date: 20080321
  Receipt Date: 20080317
  Transmission Date: 20080703
  Serious: Yes (Hospitalization)
  Sender: FDA-Public Use
  Company Number: US-BOEHRINGER INGELHEIM GMBH, GERMANY-2008-BP-02987BP

PATIENT
  Sex: Female

DRUGS (7)
  1. SPIRIVA [Suspect]
     Route: 055
     Dates: start: 20071101
  2. KLOR-CON [Concomitant]
  3. ALDACTAZIDE [Concomitant]
  4. MAGNESIUM [Concomitant]
  5. CITRACAL [Concomitant]
  6. FOSAMAX [Concomitant]
  7. HYDROCO/APAP [Concomitant]

REACTIONS (1)
  - CARCINOID TUMOUR PULMONARY [None]
